FAERS Safety Report 13849203 (Version 1)
Quarter: 2017Q3

REPORT INFORMATION
  Report Type: Spontaneous
  Country: CA (occurrence: CA)
  Receive Date: 20170809
  Receipt Date: 20170809
  Transmission Date: 20171127
  Serious: Yes (Hospitalization, Other)
  Sender: FDA-Public Use
  Company Number: CA-SUN PHARMACEUTICAL INDUSTRIES LTD-2017US-147090

PATIENT
  Age: 53 Year
  Sex: Female
  Weight: 48 kg

DRUGS (22)
  1. VENLAFAXINE [Suspect]
     Active Substance: VENLAFAXINE HYDROCHLORIDE
     Indication: DEPRESSION
     Dosage: 75 MG, QD
     Route: 048
  2. SODIUM FERRIC GLUCONATE COMPLEX. [Concomitant]
     Active Substance: SODIUM FERRIC GLUCONATE COMPLEX
     Indication: PRODUCT USED FOR UNKNOWN INDICATION
  3. TYLENOL [Concomitant]
     Active Substance: ACETAMINOPHEN
     Indication: PRODUCT USED FOR UNKNOWN INDICATION
  4. VANCOMYCIN [Concomitant]
     Active Substance: VANCOMYCIN
     Indication: PRODUCT USED FOR UNKNOWN INDICATION
  5. VENLAFAXINE [Suspect]
     Active Substance: VENLAFAXINE HYDROCHLORIDE
     Indication: ANXIETY
  6. ACETYLSALICYLIC ACID [Concomitant]
     Active Substance: ASPIRIN
     Indication: PRODUCT USED FOR UNKNOWN INDICATION
  7. CLOPIDOGREL [Concomitant]
     Active Substance: CLOPIDOGREL BISULFATE
     Indication: PRODUCT USED FOR UNKNOWN INDICATION
  8. GABAPENTIN. [Concomitant]
     Active Substance: GABAPENTIN
     Indication: PRODUCT USED FOR UNKNOWN INDICATION
  9. TOBRAMYCIN. [Concomitant]
     Active Substance: TOBRAMYCIN
     Indication: PRODUCT USED FOR UNKNOWN INDICATION
  10. PANTOPRAZOLE [Suspect]
     Active Substance: PANTOPRAZOLE
     Indication: PROPHYLAXIS
     Dosage: 40 MG, QD
     Route: 048
  11. HYDROMORPH CONTIN [Concomitant]
     Active Substance: HYDROMORPHONE
     Indication: PRODUCT USED FOR UNKNOWN INDICATION
  12. KETAMINE HYDROCHLORIDE. [Concomitant]
     Active Substance: KETAMINE HYDROCHLORIDE
     Indication: PRODUCT USED FOR UNKNOWN INDICATION
  13. BISACODYL. [Concomitant]
     Active Substance: BISACODYL
     Indication: PRODUCT USED FOR UNKNOWN INDICATION
  14. INSULIN GLARGINE [Concomitant]
     Active Substance: INSULIN GLARGINE
     Indication: PRODUCT USED FOR UNKNOWN INDICATION
  15. NABILONE [Concomitant]
     Active Substance: NABILONE
     Indication: PRODUCT USED FOR UNKNOWN INDICATION
  16. ROSUVASTATIN. [Concomitant]
     Active Substance: ROSUVASTATIN
     Indication: PRODUCT USED FOR UNKNOWN INDICATION
  17. METOPROLOL. [Concomitant]
     Active Substance: METOPROLOL
     Indication: PRODUCT USED FOR UNKNOWN INDICATION
  18. DOCUSATE [Concomitant]
     Active Substance: DOCUSATE
     Indication: PRODUCT USED FOR UNKNOWN INDICATION
  19. GRAVOL [Concomitant]
     Active Substance: DIMENHYDRINATE
     Indication: PRODUCT USED FOR UNKNOWN INDICATION
  20. LISPRO [Concomitant]
     Active Substance: INSULIN LISPRO
     Indication: PRODUCT USED FOR UNKNOWN INDICATION
  21. MULTIVITAMINS W/MINERALS [Concomitant]
     Active Substance: MINERALS\VITAMINS
     Indication: PRODUCT USED FOR UNKNOWN INDICATION
  22. RENAGEL [Concomitant]
     Active Substance: SEVELAMER HYDROCHLORIDE
     Indication: PRODUCT USED FOR UNKNOWN INDICATION

REACTIONS (3)
  - Infusion site discharge [Unknown]
  - Infusion site erythema [Unknown]
  - Neutrophil count decreased [Unknown]
